FAERS Safety Report 6679492-3 (Version None)
Quarter: 2010Q2

REPORT INFORMATION
  Report Type: 
  Country: None (occurrence: None)
  Receive Date: 20100413
  Receipt Date: 20100331
  Transmission Date: 20101027
  Serious: Yes (Other)
  Sender: FDA-Public Use
  Company Number: PHHY2010DE19683

PATIENT
  Age: 71 Year
  Sex: Male

DRUGS (1)
  1. IMATINIB [Suspect]
     Dosage: 400 MG DAILY

REACTIONS (4)
  - ABDOMINAL NEOPLASM [None]
  - FATIGUE [None]
  - LYMPHOPROLIFERATIVE DISORDER [None]
  - PERIORBITAL OEDEMA [None]
